FAERS Safety Report 11395278 (Version 1)
Quarter: 2015Q3

REPORT INFORMATION
  Report Type: Spontaneous
  Country: JP (occurrence: JP)
  Receive Date: 20150819
  Receipt Date: 20150819
  Transmission Date: 20151125
  Serious: Yes (Death, Other)
  Sender: FDA-Public Use
  Company Number: JP-MYLANLABS-2015M1027508

PATIENT

DRUGS (1)
  1. INDOMETACIN [Suspect]
     Active Substance: INDOMETHACIN
     Indication: TOCOLYSIS
     Route: 064

REACTIONS (6)
  - Hypoxia [Fatal]
  - Metabolic acidosis [Fatal]
  - Ductus arteriosus premature closure [Fatal]
  - Cardiovascular disorder [Fatal]
  - Foetal exposure during pregnancy [Unknown]
  - Pulmonary artery thrombosis [Fatal]
